FAERS Safety Report 18044047 (Version 1)
Quarter: 2020Q3

REPORT INFORMATION
  Report Type: Spontaneous
  Country: US (occurrence: US)
  Receive Date: 20200717
  Receipt Date: 20200717
  Transmission Date: 20201103
  Serious: Yes (Life-Threatening)
  Sender: FDA-Public Use
  Company Number: None

PATIENT
  Age: 76 Year
  Sex: Male

DRUGS (1)
  1. KETAMINE (KETAMINE HCL 100MG/ML/INJ) [Suspect]
     Active Substance: KETAMINE HYDROCHLORIDE
     Indication: RESPIRATORY FAILURE
     Dates: start: 20180911, end: 20180911

REACTIONS (4)
  - Female sexual arousal disorder [None]
  - Joint stiffness [None]
  - Psychomotor hyperactivity [None]
  - Paradoxical drug reaction [None]

NARRATIVE: CASE EVENT DATE: 20180911
